FAERS Safety Report 9254074 (Version 1)
Quarter: 2013Q1

REPORT INFORMATION
  Report Type: Spontaneous
  Country: US (occurrence: None)
  Receive Date: 20121203
  Receipt Date: 20121203
  Transmission Date: 20140127
  Serious: Yes (Hospitalization)
  Sender: FDA-Public Use
  Company Number: 2012SP006669

PATIENT
  Age: 27 Year
  Sex: Female
  Weight: 93.4 kg

DRUGS (1)
  1. NUVARING [Suspect]
     Indication: PRODUCT USED FOR UNKNOWN INDICATION
     Dates: start: 200810, end: 201002

REACTIONS (10)
  - Intracranial venous sinus thrombosis [None]
  - Cerebrovascular disorder [None]
  - Sinusitis [None]
  - Migraine [None]
  - Pregnancy on contraceptive [None]
  - Dermatitis contact [None]
  - Obesity [None]
  - Vomiting [None]
  - Headache [None]
  - Nausea [None]
